FAERS Safety Report 19755425 (Version 1)
Quarter: 2021Q3

REPORT INFORMATION
  Report Type: Spontaneous
  Country: GB (occurrence: GB)
  Receive Date: 20210827
  Receipt Date: 20210827
  Transmission Date: 20211014
  Serious: Yes (Disabling, Other)
  Sender: FDA-Public Use
  Company Number: GB-AUROBINDO-AUR-APL-2021-036643

PATIENT
  Age: 53 Year
  Sex: Female
  Weight: 88.9 kg

DRUGS (4)
  1. MIRTAZAPINE. [Concomitant]
     Active Substance: MIRTAZAPINE
     Indication: PRODUCT USED FOR UNKNOWN INDICATION
     Dosage: 45 MILLIGRAM
     Route: 065
  2. SALBUTAMOL [Concomitant]
     Active Substance: ALBUTEROL
     Indication: PRODUCT USED FOR UNKNOWN INDICATION
     Dosage: UNK
     Route: 065
  3. VENTOLIN [Concomitant]
     Active Substance: ALBUTEROL SULFATE
     Indication: PRODUCT USED FOR UNKNOWN INDICATION
     Dosage: UNK
     Route: 065
  4. DULOXETINE. [Suspect]
     Active Substance: DULOXETINE
     Indication: DEPRESSION
     Dosage: 60, 30, 20MG
     Route: 048
     Dates: start: 20100101

REACTIONS (6)
  - Electric shock sensation [Unknown]
  - Chills [Unknown]
  - Withdrawal syndrome [Unknown]
  - Disorientation [Not Recovered/Not Resolved]
  - Pain in extremity [Unknown]
  - Lethargy [Unknown]

NARRATIVE: CASE EVENT DATE: 2021
